FAERS Safety Report 20701539 (Version 4)
Quarter: 2023Q1

REPORT INFORMATION
  Report Type: Report from Study
  Country: FR (occurrence: None)
  Receive Date: 20220412
  Receipt Date: 20230330
  Transmission Date: 20230417
  Serious: Yes (Hospitalization)
  Sender: FDA-Public Use
  Company Number: FR-ROCHE-3070119

PATIENT
  Age: 62 Year
  Sex: Female

DRUGS (11)
  1. RITUXIMAB [Suspect]
     Active Substance: RITUXIMAB
     Indication: Vasculitis necrotising
     Route: 041
     Dates: start: 20210105
  2. AZATHIOPRINE [Suspect]
     Active Substance: AZATHIOPRINE
     Indication: Eosinophilic granulomatosis with polyangiitis
     Route: 048
     Dates: start: 20210105
  3. VALACYCLOVIR HYDROCHLORIDE [Concomitant]
     Active Substance: VALACYCLOVIR HYDROCHLORIDE
  4. FOLIC ACID [Concomitant]
     Active Substance: FOLIC ACID
  5. PANTOPRAZOLE [Concomitant]
     Active Substance: PANTOPRAZOLE
  6. ACTONEL [Concomitant]
     Active Substance: RISEDRONATE SODIUM
  7. CLARITIN [Concomitant]
     Active Substance: LORATADINE
  8. DALACIN [Concomitant]
  9. ACYCLOVIR [Concomitant]
     Active Substance: ACYCLOVIR
  10. FUCIDIN [Concomitant]
     Active Substance: FUSIDATE SODIUM
  11. BILASTINE [Concomitant]
     Active Substance: BILASTINE

REACTIONS (4)
  - Diarrhoea infectious [Recovered/Resolved]
  - COVID-19 [Recovered/Resolved]
  - Decreased appetite [Recovering/Resolving]
  - Large intestine infection [Recovered/Resolved]

NARRATIVE: CASE EVENT DATE: 20220210
